FAERS Safety Report 15665206 (Version 1)
Quarter: 2018Q4

REPORT INFORMATION
  Report Type: Spontaneous
  Country: IT (occurrence: IT)
  Receive Date: 20181128
  Receipt Date: 20181128
  Transmission Date: 20190205
  Serious: Yes (Other)
  Sender: FDA-Public Use
  Company Number: IT-ASTRAZENECA-2018SF53041

PATIENT
  Age: 69 Year
  Sex: Male

DRUGS (4)
  1. DEPAKIN [Concomitant]
     Active Substance: VALPROATE SODIUM
     Indication: AFFECTIVE DISORDER
     Dates: start: 20170101
  2. QUETIAPINE. [Suspect]
     Active Substance: QUETIAPINE
     Indication: HYPNOTHERAPY
     Route: 048
     Dates: start: 20180314, end: 20180316
  3. METHADONE HYDROCHLORIDE. [Concomitant]
     Active Substance: METHADONE HYDROCHLORIDE
     Indication: DRUG DEPENDENCE
     Dosage: 18.0MG UNKNOWN
     Route: 048
     Dates: start: 20170101
  4. MIRTAZAPINE. [Concomitant]
     Active Substance: MIRTAZAPINE
     Indication: AFFECTIVE DISORDER
     Route: 048
     Dates: start: 20170101

REACTIONS (3)
  - Extrapyramidal disorder [Recovering/Resolving]
  - Dyskinesia [Recovering/Resolving]
  - IVth nerve disorder [Recovering/Resolving]

NARRATIVE: CASE EVENT DATE: 20180314
